FAERS Safety Report 8154072-1 (Version None)
Quarter: 2012Q1

REPORT INFORMATION
  Report Type: 
  Country: None (occurrence: None)
  Receive Date: 20120221
  Receipt Date: 20120203
  Transmission Date: 20120608
  Serious: Yes (Death, Hospitalization)
  Sender: FDA-Public Use
  Company Number: US-ROCHE-1034325

PATIENT
  Sex: Male
  Weight: 88 kg

DRUGS (11)
  1. METOPROLOL TARTRATE [Concomitant]
     Indication: HYPERTENSION
     Route: 048
  2. GABAPENTIN [Concomitant]
     Indication: BACK PAIN
     Route: 048
  3. AMBIEN [Concomitant]
     Indication: INSOMNIA
     Route: 048
  4. FOLIC ACID [Concomitant]
     Dosage: SUPPLMENT
     Route: 048
  5. HYDROCHLOROTHIAZIDE [Concomitant]
     Indication: HYPERTENSION
     Route: 048
  6. CYANOCOBALAMIN [Concomitant]
     Indication: VITAMIN B12 DEFICIENCY
     Route: 048
  7. PEGINTERFERON ALFA-2A [Suspect]
     Indication: HEPATITIS C
     Dosage: FORM OF ADMINISTRATION: LOI, THE DATE OF LAST DOSE PRIOR TO THE SAE WAS 06/JAN/2012
     Route: 030
     Dates: start: 20111205, end: 20120113
  8. COPEGUS [Suspect]
     Indication: HEPATITIS C
     Route: 048
     Dates: start: 20111205, end: 20120113
  9. THIAMINE HCL [Concomitant]
     Dosage: SUPPLEMENT
     Route: 048
  10. BLINDED BI 201335 (HCV PROTEASE INHIBITOR) [Suspect]
     Indication: HEPATITIS C
     Route: 048
     Dates: start: 20111205, end: 20120113
  11. MULTI-VITAMIN [Concomitant]
     Dosage: SUPPLEMENT
     Route: 048

REACTIONS (4)
  - COAGULOPATHY [None]
  - ENTEROCOLITIS INFECTIOUS [None]
  - THROMBOCYTOPENIA [None]
  - HEPATIC FAILURE [None]
